FAERS Safety Report 6083674-1 (Version None)
Quarter: 2009Q1

REPORT INFORMATION
  Report Type: 
  Country: None (occurrence: None)
  Receive Date: 20090204
  Receipt Date: 20071018
  Transmission Date: 20090719
  Serious: Yes (Hospitalization)
  Sender: FDA-Public Use
  Company Number: 267025

PATIENT
  Age: 32 Year
  Sex: Male

DRUGS (4)
  1. NOVOLOG [Suspect]
     Indication: TYPE 1 DIABETES MELLITUS
     Dosage: SLIDING SCALE, QID, SUBCUTAN.-PUMP
     Route: 058
  2. NOVOLOG [Suspect]
  3. NOVOLOG [Suspect]
  4. NOVOLOG [Suspect]

REACTIONS (1)
  - DIABETIC KETOACIDOSIS [None]
